FAERS Safety Report 5179917-9 (Version None)
Quarter: 2006Q4

REPORT INFORMATION
  Report Type: 
  Country: None (occurrence: None)
  Receive Date: 20061212
  Receipt Date: 20061129
  Transmission Date: 20070319
  Serious: Yes (Other)
  Sender: FDA-Public Use
  Company Number: 2006147840

PATIENT
  Age: 26 Year
  Sex: Female
  Weight: 53 kg

DRUGS (3)
  1. LYRICA [Suspect]
     Indication: BACK PAIN
     Dosage: 300 MG (150 MG, 2 IN 1 D); ORAL
     Route: 048
     Dates: start: 20051101, end: 20060205
  2. LYRICA [Suspect]
     Indication: PAIN IN EXTREMITY
     Dosage: 300 MG (150 MG, 2 IN 1 D); ORAL
     Route: 048
     Dates: start: 20051101, end: 20060205
  3. HARMONET (ETHINYLESTRADIOL, GESTODENE) [Concomitant]

REACTIONS (5)
  - CHEST PAIN [None]
  - CHILLS [None]
  - DRUG WITHDRAWAL SYNDROME [None]
  - HYPERHIDROSIS [None]
  - INSOMNIA [None]
